FAERS Safety Report 8251908-0 (Version None)
Quarter: 2012Q2

REPORT INFORMATION
  Report Type: 
  Country: None (occurrence: None)
  Receive Date: 20120402
  Receipt Date: 20120327
  Transmission Date: 20120825
  Serious: Yes (Death, Other)
  Sender: FDA-Public Use
  Company Number: JP-PFIZER INC-2012078914

PATIENT
  Age: 77 Year
  Sex: Male

DRUGS (3)
  1. ETODOLAC [Suspect]
     Indication: CANCER PAIN
     Dosage: 400MG, DAILY
     Route: 048
     Dates: start: 20100111
  2. MORPHINE SULFATE [Interacting]
     Indication: CANCER PAIN
     Dosage: 30MG, DAILY
     Route: 048
     Dates: start: 20100111
  3. LYRICA [Interacting]
     Indication: CANCER PAIN
     Dosage: 150MG, DAILY
     Route: 048
     Dates: start: 20110215, end: 20110228

REACTIONS (3)
  - ASTHENIA [None]
  - DEATH [None]
  - DRUG INTERACTION [None]
